FAERS Safety Report 11422679 (Version 3)
Quarter: 2015Q3

REPORT INFORMATION
  Report Type: Report from Study
  Country: CA (occurrence: CA)
  Receive Date: 20150827
  Receipt Date: 20150922
  Transmission Date: 20151125
  Serious: Yes (Other)
  Sender: FDA-Public Use
  Company Number: PHHY2015CA103613

PATIENT
  Age: 52 Year
  Sex: Male

DRUGS (1)
  1. CLOZARIL [Suspect]
     Active Substance: CLOZAPINE
     Indication: PRODUCT USED FOR UNKNOWN INDICATION
     Dosage: UNK
     Route: 048
     Dates: start: 20150709, end: 20150825

REACTIONS (8)
  - Hydrocele [Not Recovered/Not Resolved]
  - Neutrophil count decreased [Recovered/Resolved]
  - Testicular cancer metastatic [Not Recovered/Not Resolved]
  - Lymphadenopathy [Unknown]
  - Metastases to lung [Unknown]
  - White blood cell count decreased [Not Recovered/Not Resolved]
  - Pulmonary mass [Unknown]
  - Atelectasis [Unknown]

NARRATIVE: CASE EVENT DATE: 20150710
